FAERS Safety Report 23229370 (Version 1)
Quarter: 2023Q4

REPORT INFORMATION
  Report Type: Spontaneous
  Country: CN (occurrence: None)
  Receive Date: 20231127
  Receipt Date: 20231127
  Transmission Date: 20240110
  Serious: Yes (Other)
  Sender: FDA-Public Use
  Company Number: CN-ROCHE-3461815

PATIENT
  Age: 67 Year
  Sex: Female
  Weight: 60 kg

DRUGS (5)
  1. MABTHERA [Suspect]
     Active Substance: RITUXIMAB
     Indication: Lymphoma
     Route: 041
     Dates: start: 20231019, end: 20231019
  2. CYCLOPHOSPHAMIDE [Suspect]
     Active Substance: CYCLOPHOSPHAMIDE
     Indication: Lymphoma
     Route: 041
     Dates: start: 20231020, end: 20231020
  3. VINDESINE SULFATE [Suspect]
     Active Substance: VINDESINE SULFATE
     Indication: Lymphoma
     Route: 041
     Dates: start: 20231020
  4. PIRARUBICIN HYDROCHLORIDE [Suspect]
     Active Substance: PIRARUBICIN HYDROCHLORIDE
     Indication: Lymphoma
     Route: 041
     Dates: start: 20231020
  5. PREDNISONE [Suspect]
     Active Substance: PREDNISONE
     Indication: Lymphoma
     Route: 065

REACTIONS (1)
  - Granulocyte count decreased [Recovering/Resolving]

NARRATIVE: CASE EVENT DATE: 20231109
